FAERS Safety Report 25315911 (Version 2)
Quarter: 2025Q4

REPORT INFORMATION
  Report Type: Report from Study
  Country: US (occurrence: US)
  Receive Date: 20250515
  Receipt Date: 20251004
  Transmission Date: 20260118
  Serious: Yes (Other)
  Sender: JAZZ
  Company Number: US-JAZZ PHARMACEUTICALS-2025-US-010118

PATIENT
  Age: 53 Year
  Sex: Female

DRUGS (32)
  1. XYWAV [Suspect]
     Active Substance: CALCIUM OXYBATE\MAGNESIUM OXYBATE\POTASSIUM OXYBATE\SODIUM OXYBATE
     Indication: Narcolepsy
     Dosage: 4.25 GRAM, QD
  2. XYWAV [Suspect]
     Active Substance: CALCIUM OXYBATE\MAGNESIUM OXYBATE\POTASSIUM OXYBATE\SODIUM OXYBATE
     Indication: Cataplexy
     Dosage: 4 GRAM FIRST DOSE AND 2.5 GRAM SECOND DOSE
  3. XYWAV [Suspect]
     Active Substance: CALCIUM OXYBATE\MAGNESIUM OXYBATE\POTASSIUM OXYBATE\SODIUM OXYBATE
     Indication: Somnolence
  4. WEGOVY [Suspect]
     Active Substance: SEMAGLUTIDE
     Indication: Product used for unknown indication
  5. PROPRANOLOL [Concomitant]
     Active Substance: PROPRANOLOL HYDROCHLORIDE
     Dosage: UNK
  6. KETAMINE HYDROCHLORIDE [Concomitant]
     Active Substance: KETAMINE HYDROCHLORIDE
     Dosage: UNK
  7. NALTREXONE HYDROCHLORIDE [Concomitant]
     Active Substance: NALTREXONE HYDROCHLORIDE
     Dosage: TAKE 4.5 MG BY MOUTH DAILY
  8. CYANOCOBALAMIN [Concomitant]
     Active Substance: CYANOCOBALAMIN
     Indication: Product used for unknown indication
     Dosage: 1,000 MICROGRAM/MILLILITER
  9. VYEPTI [Concomitant]
     Active Substance: EPTINEZUMAB-JJMR
     Indication: Product used for unknown indication
     Dosage: 100 MILLIGRAM/MILLILITER
  10. CREON [Concomitant]
     Active Substance: PANCRELIPASE AMYLASE\PANCRELIPASE LIPASE\PANCRELIPASE PROTEASE
     Indication: Product used for unknown indication
     Dosage: 24,000 UNIT
  11. CREON [Concomitant]
     Active Substance: PANCRELIPASE AMYLASE\PANCRELIPASE LIPASE\PANCRELIPASE PROTEASE
     Dosage: 120000 UNIT
  12. RINVOQ [Concomitant]
     Active Substance: UPADACITINIB
     Dosage: UNK
  13. AUVELITY [Concomitant]
     Active Substance: BUPROPION HYDROCHLORIDE\DEXTROMETHORPHAN HYDROBROMIDE
     Dosage: UNK
  14. QULIPTA [Concomitant]
     Active Substance: ATOGEPANT
     Indication: Product used for unknown indication
     Dosage: TAKE 1 TABLET (60 MG TOTAL) BY MOUTH DAILY AT NOON
  15. ATORVASTATIN [Concomitant]
     Active Substance: ATORVASTATIN
     Dosage: TAKE 1 TABLET (20 MG TOTAL) BY MOUTH DAILY INDICATIONS: HARDENING OF THE ARTERIES DUE TO PLAQUE BUILDUP
  16. BIOTIN [Concomitant]
     Active Substance: BIOTIN
     Dosage: CHEW 1 CHEWABLE TABLET DAILY AT NOON
  17. BUPROPION [Concomitant]
     Active Substance: BUPROPION
     Indication: Product used for unknown indication
  18. DEXLANSOPRAZOLE [Concomitant]
     Active Substance: DEXLANSOPRAZOLE
     Indication: Product used for unknown indication
     Dosage: TAKE 1 CAPSULE (60 MG TOTAL) BY MOUTH DAILY
  19. ADDERALL [Concomitant]
     Active Substance: AMPHETAMINE ASPARTATE\AMPHETAMINE SULFATE\DEXTROAMPHETAMINE SACCHARATE\DEXTROAMPHETAMINE SULFATE
     Indication: Product used for unknown indication
  20. FOLIC ACID [Concomitant]
     Active Substance: FOLIC ACID
     Indication: Product used for unknown indication
     Dosage: TAKE 1 MG BY MOUTH DAILY
  21. GUANFACINE [Concomitant]
     Active Substance: GUANFACINE
     Indication: Anxiety
     Dosage: TAKE 0.5 TABLETS (0.5 MG TOTAL) BY MOUTH 3 TIMES A DAY AS NEEDED
  22. HYOSCYAMINE SULFATE [Concomitant]
     Active Substance: HYOSCYAMINE SULFATE
     Indication: Product used for unknown indication
     Dosage: TAKE 1 TABLET (0.125 MG TOTAL) BY MOUTH AS NEEDED.
  23. SYNTHROID [Concomitant]
     Active Substance: LEVOTHYROXINE SODIUM
     Dosage: TAKE 1 TABLET (125 MCG TOTAL) BY MOUTH EVERY MORNING
  24. METHOCARBAMOL [Concomitant]
     Active Substance: METHOCARBAMOL
     Indication: Product used for unknown indication
     Dosage: TAKE 1 TABLET (750 MG TOTAL) BY MOUTH AS NEEDED FOR MUSCLE SPASMS
  25. ONDANSETRON ODT [ONDANSETRON] [Concomitant]
     Indication: Product used for unknown indication
     Dosage: TAKE 1 TABLET (4 MG TOTAL) BY MOUTH EVERY 6 HOURS AS NEEDED FOR VOMITING OR NAUSEA
  26. TRULANCE [Concomitant]
     Active Substance: PLECANATIDE
     Indication: Product used for unknown indication
     Dosage: TAKE 1 TABLET (3 MG TOTAL) BY MOUTH DAILY AT NOON
  27. RIZATRIPTAN [Concomitant]
     Active Substance: RIZATRIPTAN
     Indication: Product used for unknown indication
     Dosage: TAKE,1 TABLET (10 MG TOTAL) BY MOUTH AS NEEDED
  28. ROPINIROLE [Concomitant]
     Active Substance: ROPINIROLE
     Indication: Product used for unknown indication
     Dosage: TAKE 1 TABLET (2 MG TOTAL) BY MOUTH 2 TIMES A DAY INDICATIONS: PARKINSON^S DISEASE
  29. SERTRALINE [Concomitant]
     Active Substance: SERTRALINE HYDROCHLORIDE
     Indication: Product used for unknown indication
     Dosage: TAKE 1.5 TABLETS (75 MG TOTAL) BY MOUTH DAILY
  30. SUCRALFATE [Concomitant]
     Active Substance: SUCRALFATE
     Indication: Product used for unknown indication
     Dosage: TAKE 1 TABLET (1 G TOTAL) BY MOUTH 3 TIMES A DAY AS NEEDED
  31. TOPIRAMATE [Concomitant]
     Active Substance: TOPIRAMATE
     Indication: Product used for unknown indication
     Dosage: TAKE 1 TABLET (100 MG TOTAL) BY MOUTH EVERY 12 HOURS
  32. TRIAMCINOLONE [Concomitant]
     Active Substance: TRIAMCINOLONE
     Indication: Product used for unknown indication

REACTIONS (5)
  - Surgery [Unknown]
  - Back pain [Unknown]
  - Nausea [Unknown]
  - Carpal tunnel syndrome [Unknown]
  - Off label use [Unknown]

NARRATIVE: CASE EVENT DATE: 20250502
